FAERS Safety Report 23167534 (Version 2)
Quarter: 2023Q4

REPORT INFORMATION
  Report Type: Report from Study
  Country: US (occurrence: US)
  Receive Date: 20231109
  Receipt Date: 20231214
  Transmission Date: 20240109
  Serious: Yes (Hospitalization)
  Sender: FDA-Public Use
  Company Number: US-PFIZER INC-PV202300182050

PATIENT
  Age: 48 Year
  Sex: Female

DRUGS (3)
  1. INLYTA [Suspect]
     Active Substance: AXITINIB
     Indication: Renal cell carcinoma
     Dosage: 5MG TWICE DAILY
     Route: 048
     Dates: start: 20231027, end: 202311
  2. INLYTA [Suspect]
     Active Substance: AXITINIB
     Dosage: 5MG TWICE DAILY
     Route: 048
     Dates: start: 20231122
  3. KEYTRUDA [Suspect]
     Active Substance: PEMBROLIZUMAB
     Dosage: UNK

REACTIONS (8)
  - Abdominal distension [Recovering/Resolving]
  - Gastritis [Unknown]
  - Seizure [Recovering/Resolving]
  - Epistaxis [Unknown]
  - Joint swelling [Unknown]
  - Erythema [Unknown]
  - Oral pain [Not Recovered/Not Resolved]
  - Product dose omission issue [Unknown]

NARRATIVE: CASE EVENT DATE: 20230101
